FAERS Safety Report 9726931 (Version 2)
Quarter: 2013Q4

REPORT INFORMATION
  Report Type: Spontaneous
  Country: JP (occurrence: None)
  Receive Date: 20131129
  Receipt Date: 20131209
  Transmission Date: 20140711
  Serious: Yes (Hospitalization)
  Sender: FDA-Public Use
  Company Number: AG-2013-016003

PATIENT
  Age: 67 Year
  Sex: Male

DRUGS (4)
  1. CHLORAMBUCIL (CHLORAMBUCIL) (TABLET) [Suspect]
     Indication: CHRONIC LYMPHOCYTIC LEUKAEMIA
     Dosage: 16 MILLIGRAM (16 MILLIGRAM, 1 IN 1 D
     Route: 048
     Dates: start: 20130826, end: 20130901
  2. LIPITOR (ATORVASTATIN) [Concomitant]
  3. AMLODIPINE (AMLODIPINE) [Concomitant]
  4. BACTRAMIN (SULFAMETHOXAZOLE AND TRIMETHOPRIM) [Concomitant]

REACTIONS (1)
  - Herpes zoster [None]
